FAERS Safety Report 16373799 (Version 4)
Quarter: 2021Q4

REPORT INFORMATION
  Report Type: Spontaneous
  Country: US (occurrence: US)
  Receive Date: 20190530
  Receipt Date: 20211108
  Transmission Date: 20220303
  Serious: Yes (Other)
  Sender: FDA-Public Use
  Company Number: US-MLMSERVICE-20190520-1762493-2

PATIENT
  Age: 45 Year
  Sex: Female

DRUGS (8)
  1. DOXORUBICIN [Suspect]
     Active Substance: DOXORUBICIN
     Indication: Cutaneous T-cell lymphoma
     Dosage: UNK, CYCLIC (PEGYLATED LIPOSOMAL DOXORUBICIN (34 CYCLES))
  2. DOXORUBICIN [Suspect]
     Active Substance: DOXORUBICIN
     Dosage: UNK, CYCLIC (BRIEFLY RESUMING PEGYLATED LIPOSOMAL DOXORUBICIN)
  3. PREDNISONE [Concomitant]
     Active Substance: PREDNISONE
     Indication: Cutaneous T-cell lymphoma
     Dosage: UNK, CYCLIC (CVP)
  4. PREDNISONE [Concomitant]
     Active Substance: PREDNISONE
     Dosage: UNK, CYCLIC (FIVE CYCLES OF CVP PLUS PLD)
  5. VINCRISTINE [Concomitant]
     Active Substance: VINCRISTINE
     Indication: Cutaneous T-cell lymphoma
     Dosage: UNK, CYCLIC (CVP)
  6. VINCRISTINE [Concomitant]
     Active Substance: VINCRISTINE
     Dosage: UNK, CYCLIC (FIVE CYCLES OF CVP PLUS PLD)
  7. CYCLOPHOSPHAMIDE [Concomitant]
     Active Substance: CYCLOPHOSPHAMIDE
     Indication: Cutaneous T-cell lymphoma
     Dosage: UNK, CYCLIC (CVP)
  8. CYCLOPHOSPHAMIDE [Concomitant]
     Active Substance: CYCLOPHOSPHAMIDE
     Dosage: UNK, (CYCLIC FIVE CYCLES OF CVP PLUS PLD)

REACTIONS (5)
  - Palmar-plantar erythrodysaesthesia syndrome [Unknown]
  - Stomatitis [Unknown]
  - Second primary malignancy [Unknown]
  - Squamous cell carcinoma of the oral cavity [Unknown]
  - Squamous cell carcinoma of skin [Unknown]
